FAERS Safety Report 5015822-6 (Version None)
Quarter: 2006Q2

REPORT INFORMATION
  Report Type: 
  Country: None (occurrence: None)
  Receive Date: 20060406
  Receipt Date: 20051201
  Transmission Date: 20061013
  Serious: No
  Sender: FDA-Public Use
  Company Number: US159712

PATIENT
  Age: 24 Year
  Sex: Male

DRUGS (7)
  1. SENSIPAR [Suspect]
     Indication: HYPERPARATHYROIDISM SECONDARY
     Dosage: 30 MG, 1 IN 1 DAYS, PO
     Route: 048
     Dates: start: 20051012
  2. SEVELAMER HCL [Concomitant]
  3. CARVEDILOL [Concomitant]
  4. VENOFER [Concomitant]
  5. GENTAMYCIN SULFATE [Concomitant]
  6. MULTIVIT [Concomitant]
  7. EPOGEN [Concomitant]

REACTIONS (1)
  - BLINDNESS [None]
